FAERS Safety Report 18992257 (Version 1)
Quarter: 2021Q1

REPORT INFORMATION
  Report Type: Spontaneous
  Country: DE (occurrence: DE)
  Receive Date: 20210310
  Receipt Date: 20210310
  Transmission Date: 20210420
  Serious: Yes (Death, Hospitalization)
  Sender: FDA-Public Use
  Company Number: DE-009507513-1504DEU011261

PATIENT
  Age: 75 Year
  Sex: Male
  Weight: 73 kg

DRUGS (50)
  1. CUBICIN [Suspect]
     Active Substance: DAPTOMYCIN
     Indication: KLEBSIELLA INFECTION
  2. CUBICIN [Suspect]
     Active Substance: DAPTOMYCIN
     Indication: KLEBSIELLA INFECTION
  3. NOREPINEPHRINE. [Concomitant]
     Active Substance: NOREPINEPHRINE
     Dosage: UNK
  4. SUFENTANIL [Concomitant]
     Active Substance: SUFENTANIL
     Dosage: UNK
     Route: 042
     Dates: start: 20091109, end: 20091109
  5. ACETYLCYSTEINE. [Concomitant]
     Active Substance: ACETYLCYSTEINE
     Dosage: UNK
  6. CUBICIN [Suspect]
     Active Substance: DAPTOMYCIN
     Indication: CANDIDA INFECTION
     Dosage: UNK
     Route: 042
     Dates: start: 20091125, end: 20091209
  7. CUBICIN [Suspect]
     Active Substance: DAPTOMYCIN
     Indication: OFF LABEL USE
  8. CUBICIN [Suspect]
     Active Substance: DAPTOMYCIN
     Indication: SEPSIS
  9. ESKETAMINE [Concomitant]
     Active Substance: ESKETAMINE
     Dosage: UNK
  10. DEXTROSE. [Concomitant]
     Active Substance: DEXTROSE
     Dosage: UNK
     Route: 042
     Dates: start: 20091106
  11. PANTOPRAZOLE [Concomitant]
     Active Substance: PANTOPRAZOLE
     Dosage: UNK
     Route: 042
     Dates: start: 20091106
  12. ROCURONIUM BROMIDE. [Concomitant]
     Active Substance: ROCURONIUM BROMIDE
     Dosage: UNK
  13. CHLORAL HYDRATE [Concomitant]
     Active Substance: CHLORAL HYDRATE
     Dosage: UNK
     Route: 042
     Dates: start: 20091114, end: 20091123
  14. EPINEPHRINE. [Concomitant]
     Active Substance: EPINEPHRINE
     Dosage: UNK
  15. PHYSOSTIGMINE [Concomitant]
     Active Substance: PHYSOSTIGMINE
     Dosage: UNK
  16. CALCIUM (UNSPECIFIED) [Concomitant]
     Active Substance: CALCIUM
     Dosage: UNK
  17. SUCRALFATE. [Concomitant]
     Active Substance: SUCRALFATE
     Dosage: UNK
     Route: 048
     Dates: start: 20091114
  18. ZIENAM [Concomitant]
     Active Substance: CILASTATIN SODIUM\IMIPENEM
     Dosage: UNK
     Route: 042
     Dates: start: 20091109, end: 20091123
  19. MIDAZOLAM. [Concomitant]
     Active Substance: MIDAZOLAM
     Dosage: UNK
  20. ETOMIDATE. [Concomitant]
     Active Substance: ETOMIDATE
     Dosage: UNK
     Route: 042
     Dates: start: 20091126, end: 20091126
  21. AMIODARONE [Concomitant]
     Active Substance: AMIODARONE
     Dosage: UNK
  22. PIRITRAMIDE [Concomitant]
     Active Substance: PIRITRAMIDE
     Dosage: UNK
  23. ASPIRINE [Concomitant]
     Active Substance: ASPIRIN
     Dosage: UNK
  24. FORMOTEROL FUMARATE [Concomitant]
     Active Substance: FORMOTEROL FUMARATE
     Dosage: UNK
  25. ILOPROST. [Concomitant]
     Active Substance: ILOPROST
     Dosage: UNK
  26. SALICYLIC ACID. [Concomitant]
     Active Substance: SALICYLIC ACID
     Dosage: UNK
  27. MEROPENEM. [Suspect]
     Active Substance: MEROPENEM
     Indication: SEPSIS
     Dosage: UNK
     Route: 042
     Dates: start: 20091125
  28. VECURONIUM BROMIDE. [Concomitant]
     Active Substance: VECURONIUM BROMIDE
     Dosage: UNK
  29. FUROSEMIDE. [Concomitant]
     Active Substance: FUROSEMIDE
     Dosage: UNK
  30. CHLORHEXIDINE [Concomitant]
     Active Substance: CHLORHEXIDINE
     Dosage: UNK
  31. ACETAMINOPHEN. [Concomitant]
     Active Substance: ACETAMINOPHEN
     Dosage: UNK
  32. INSULIN [Concomitant]
     Active Substance: INSULIN NOS
     Dosage: UNK
     Route: 042
     Dates: start: 20091105, end: 20091205
  33. DOBUTAMINE [Concomitant]
     Active Substance: DOBUTAMINE HYDROCHLORIDE
     Dosage: UNK
  34. VASOPRESSIN. [Concomitant]
     Active Substance: VASOPRESSIN
     Dosage: UNK
     Route: 042
     Dates: start: 20091109, end: 20091111
  35. VANCOMYCIN [Concomitant]
     Active Substance: VANCOMYCIN
     Dosage: UNK
     Route: 042
     Dates: start: 20091109, end: 20091109
  36. DIPYRONE [Concomitant]
     Active Substance: DIPYRONE
     Dosage: UNK
  37. ERYTHROMYCIN. [Concomitant]
     Active Substance: ERYTHROMYCIN
     Dosage: UNK
     Route: 042
     Dates: start: 20091109
  38. POTASSIUM (UNSPECIFIED) [Concomitant]
     Active Substance: POTASSIUM
     Dosage: UNK
     Route: 042
     Dates: start: 20091105, end: 20091203
  39. GASTROGRAFIN [Concomitant]
     Active Substance: DIATRIZOATE MEGLUMINE\DIATRIZOATE SODIUM
     Dosage: UNK
     Dates: start: 20091112, end: 20091125
  40. MAGNESIUM (UNSPECIFIED) [Concomitant]
     Active Substance: MAGNESIUM
     Dosage: UNK
     Route: 042
     Dates: start: 20091106, end: 20091106
  41. METOCLOPRAMIDE. [Concomitant]
     Active Substance: METOCLOPRAMIDE
     Dosage: UNK
  42. DIFLUCAN [Concomitant]
     Active Substance: FLUCONAZOLE
     Dosage: UNK
     Route: 042
     Dates: start: 20091125
  43. CUBICIN [Suspect]
     Active Substance: DAPTOMYCIN
     Indication: PATHOGEN RESISTANCE
  44. ESMERON [Concomitant]
     Active Substance: ROCURONIUM BROMIDE
     Dosage: UNK
     Dates: start: 20091126, end: 20091126
  45. ALBUTEROL. [Concomitant]
     Active Substance: ALBUTEROL
  46. SODIUM BICARBONATE. [Concomitant]
     Active Substance: SODIUM BICARBONATE
     Dosage: UNK
     Route: 042
     Dates: start: 20091109, end: 20091109
  47. VANCOMYCIN [Concomitant]
     Active Substance: VANCOMYCIN
     Dosage: UNK
     Route: 042
     Dates: start: 20091111, end: 20091130
  48. SUFENTANIL [Concomitant]
     Active Substance: SUFENTANIL
     Dosage: UNK
     Route: 042
     Dates: start: 20091126, end: 20091126
  49. ZOCOR [Concomitant]
     Active Substance: SIMVASTATIN
     Dosage: UNK
     Route: 042
     Dates: start: 20091106, end: 20091113
  50. HEPARIN [Concomitant]
     Active Substance: HEPARIN SODIUM
     Dosage: UNK

REACTIONS (4)
  - Multiple organ dysfunction syndrome [Fatal]
  - Condition aggravated [Fatal]
  - Sepsis [Fatal]
  - Impaired healing [Recovered/Resolved]

NARRATIVE: CASE EVENT DATE: 200911
